FAERS Safety Report 5187077-3 (Version None)
Quarter: 2006Q4

REPORT INFORMATION
  Report Type: 
  Country: None (occurrence: None)
  Receive Date: 20061214
  Receipt Date: 20061201
  Transmission Date: 20070319
  Serious: Yes (Life-Threatening, Hospitalization, Disabling)
  Sender: FDA-Public Use
  Company Number: 2000030434JP

PATIENT
  Age: 13 Year
  Sex: Male
  Weight: 29 kg

DRUGS (5)
  1. GENOTROPIN [Suspect]
     Indication: HYPOPITUITARISM
     Dosage: 0.8 MG (1 IN 1 D), SUBCUTANEOUS
     Route: 058
     Dates: start: 20000906, end: 20000918
  2. ERYTHROMYCIN [Concomitant]
  3. ALFACALCIDOL (ALFACALCIDOL) [Concomitant]
  4. CALCIUM (CALCIUM) [Concomitant]
  5. FUROSEMIDE [Concomitant]

REACTIONS (4)
  - ABASIA [None]
  - ACUTE LYMPHOCYTIC LEUKAEMIA RECURRENT [None]
  - FACE OEDEMA [None]
  - MYALGIA [None]
